FAERS Safety Report 17233593 (Version 7)
Quarter: 2020Q1

REPORT INFORMATION
  Report Type: Report from Study
  Country: DE (occurrence: DE)
  Receive Date: 20200105
  Receipt Date: 20200330
  Transmission Date: 20200409
  Serious: Yes (Hospitalization)
  Sender: FDA-Public Use
  Company Number: NVSC2019DE065828

PATIENT
  Age: 77 Year
  Sex: Male
  Weight: 58.9 kg

DRUGS (17)
  1. BLINDED AIN457 [Suspect]
     Active Substance: SECUKINUMAB
     Indication: TEMPORAL ARTERITIS
     Dosage: CODE NOT BROKEN
     Route: 058
     Dates: start: 20191022
  2. MOISTURIZER [Concomitant]
     Active Substance: UNSPECIFIED INGREDIENT
     Indication: SKIN FISSURES
     Dosage: UNK
     Route: 065
     Dates: start: 20191105
  3. DEKRISTOL [Concomitant]
     Active Substance: CHOLECALCIFEROL
     Indication: VITAMIN D DEFICIENCY
     Dosage: UNK
     Route: 065
     Dates: start: 20190920
  4. SPIRONOLACTON [Concomitant]
     Active Substance: SPIRONOLACTONE
     Indication: HYPERTENSION
     Dosage: UNK
     Route: 065
     Dates: start: 20190919
  5. AMIODARON [Concomitant]
     Active Substance: AMIODARONE
     Indication: TACHYARRHYTHMIA
     Dosage: UNK
     Route: 065
     Dates: start: 20190919
  6. NOVALGIN [Concomitant]
     Indication: MUSCULOSKELETAL PAIN
     Dosage: UNK
     Route: 065
     Dates: start: 20190919
  7. DIGITOXIN [Concomitant]
     Active Substance: DIGITOXIN
     Indication: TACHYARRHYTHMIA
     Dosage: UNK
     Route: 065
     Dates: start: 20191107, end: 20191107
  8. BLINDED NO TREATMENT RECEIVED [Suspect]
     Active Substance: INVESTIGATIONAL PRODUCT
     Indication: TEMPORAL ARTERITIS
     Dosage: CODE NOT BROKEN
     Route: 058
     Dates: start: 20191022
  9. BLINDED PLACEBO [Suspect]
     Active Substance: INVESTIGATIONAL PRODUCT
     Indication: TEMPORAL ARTERITIS
     Dosage: CODE NOT BROKEN
     Route: 058
     Dates: start: 20191022
  10. OXYCODAN [Concomitant]
     Indication: PAIN
     Dosage: UNK
     Route: 065
     Dates: start: 20190919
  11. AMIODARON [Concomitant]
     Active Substance: AMIODARONE
     Dosage: UNK
     Route: 065
     Dates: start: 20191107, end: 20191107
  12. PREDNISOLONE. [Suspect]
     Active Substance: PREDNISOLONE
     Indication: TEMPORAL ARTERITIS
     Dosage: UNK
     Route: 065
     Dates: start: 20190920, end: 20191112
  13. BLINDED AIN457 [Suspect]
     Active Substance: SECUKINUMAB
     Indication: TEMPORAL ARTERITIS
     Dosage: CODE NOT BROKEN
     Route: 058
     Dates: start: 20191022
  14. FUROSEMID [Concomitant]
     Active Substance: FUROSEMIDE
     Indication: HYPERTENSION
     Dosage: UNK
     Route: 065
     Dates: start: 20190919
  15. ASPIRIN. [Concomitant]
     Active Substance: ASPIRIN
     Indication: ANTICOAGULANT THERAPY
     Dosage: UNK
     Route: 065
     Dates: start: 19870101, end: 20191126
  16. FOLSAN [Concomitant]
     Active Substance: FOLIC ACID
     Indication: FOLATE DEFICIENCY
     Dosage: UNK
     Route: 065
     Dates: start: 20190920
  17. PANTOPRAZOL [Concomitant]
     Active Substance: PANTOPRAZOLE SODIUM
     Indication: PROPHYLAXIS
     Dosage: UNK
     Route: 065
     Dates: start: 20190920

REACTIONS (1)
  - Pyrexia [Recovered/Resolved]

NARRATIVE: CASE EVENT DATE: 20191119
